FAERS Safety Report 8934380 (Version 1)
Quarter: 2012Q4

REPORT INFORMATION
  Report Type: 
  Country: BR (occurrence: BR)
  Receive Date: 20121129
  Receipt Date: 20121129
  Transmission Date: 20130627
  Serious: Yes (Other)
  Sender: FDA-Public Use
  Company Number: BR-ASTRAZENECA-2012SE72548

PATIENT
  Age: 780 Month
  Sex: Female

DRUGS (9)
  1. VANNAIR [Suspect]
     Indication: ASTHMA
     Dosage: 160/4.5 MCG UNKNOWN FREQURNCY
     Route: 055
     Dates: start: 2011, end: 20120101
  2. VANNAIR [Suspect]
     Indication: PNEUMONIA
     Dosage: 160/4.5 MCG UNKNOWN FREQURNCY
     Route: 055
     Dates: start: 2011, end: 20120101
  3. VANNAIR [Suspect]
     Indication: ASTHMA
     Dosage: SYMBICORT TURBUHALER, UNKNOWN FREQUENCY
     Route: 055
     Dates: start: 20120101
  4. VANNAIR [Suspect]
     Indication: PNEUMONIA
     Dosage: SYMBICORT TURBUHALER, UNKNOWN FREQUENCY
     Route: 055
     Dates: start: 20120101
  5. VANNAIR [Suspect]
     Indication: ASTHMA
     Dosage: 160/4.5 MCG, 2 SPRAYS BID
     Route: 055
  6. VANNAIR [Suspect]
     Indication: PNEUMONIA
     Dosage: 160/4.5 MCG, 2 SPRAYS BID
     Route: 055
  7. CHEMOTHERAPY [Suspect]
     Route: 065
  8. REUQUINOL [Concomitant]
     Route: 048
     Dates: start: 20120101
  9. PANTOPRAZOLE [Concomitant]
     Route: 048
     Dates: start: 20120101, end: 20120303

REACTIONS (4)
  - Gastrointestinal neoplasm [Unknown]
  - Asthma [Unknown]
  - Muscle spasms [Recovered/Resolved]
  - Oral candidiasis [Unknown]
